FAERS Safety Report 14376273 (Version 1)
Quarter: 2018Q1

REPORT INFORMATION
  Report Type: Spontaneous
  Country: SE (occurrence: SE)
  Receive Date: 20180111
  Receipt Date: 20180111
  Transmission Date: 20180509
  Serious: Yes (Death)
  Sender: FDA-Public Use
  Company Number: SE-PFIZER INC-2018013071

PATIENT
  Sex: Male

DRUGS (5)
  1. VENLAFAXINE HCL [Suspect]
     Active Substance: VENLAFAXINE HYDROCHLORIDE
     Dosage: UNK
  2. OXASCAND [Suspect]
     Active Substance: OXAZEPAM
     Dosage: UNK
  3. ATARAX [Suspect]
     Active Substance: HYDROXYZINE HYDROCHLORIDE
     Dosage: UNK
  4. NOZINAN /00038601/ [Suspect]
     Active Substance: LEVOMEPROMAZINE
     Dosage: UNK
  5. PROPAVAN [Suspect]
     Active Substance: PROPIOMAZINE
     Dosage: UNK

REACTIONS (3)
  - Completed suicide [Fatal]
  - Alcohol poisoning [Fatal]
  - Toxicity to various agents [Fatal]
